FAERS Safety Report 8321203-X (Version None)
Quarter: 2012Q2

REPORT INFORMATION
  Report Type: 
  Country: None (occurrence: None)
  Receive Date: 20120430
  Receipt Date: 20120418
  Transmission Date: 20120825
  Serious: Yes (Hospitalization, Other)
  Sender: FDA-Public Use
  Company Number: US-JNJFOC-20110502874

PATIENT
  Sex: Female
  Weight: 74.39 kg

DRUGS (8)
  1. AMITRIPTYLINE HCL [Concomitant]
     Indication: NEUROPATHY PERIPHERAL
     Dates: start: 20110101
  2. PREDNISONE [Suspect]
     Indication: CROHN'S DISEASE
     Route: 048
  3. EVISTA [Concomitant]
     Indication: OSTEOPOROSIS PROPHYLAXIS
     Route: 048
     Dates: start: 20110101
  4. REMICADE [Suspect]
     Indication: RHEUMATOID ARTHRITIS
     Route: 042
     Dates: start: 20040101
  5. TIZANIDINE HCL [Concomitant]
     Indication: MYALGIA
     Route: 048
     Dates: start: 20100101
  6. PREDNISONE [Suspect]
     Route: 048
     Dates: start: 19850101
  7. PREDNISONE [Suspect]
     Route: 048
  8. CALCIUM CARBONATE [Concomitant]
     Indication: OSTEOPOROSIS PROPHYLAXIS
     Route: 048

REACTIONS (14)
  - FOOT FRACTURE [None]
  - BURSITIS [None]
  - NERVOUSNESS [None]
  - NASOPHARYNGITIS [None]
  - KNEE ARTHROPLASTY [None]
  - VIRAL INFECTION [None]
  - LUNG NEOPLASM [None]
  - BACK PAIN [None]
  - SCIATICA [None]
  - BLOOD TEST ABNORMAL [None]
  - ANXIETY [None]
  - ANGIOPATHY [None]
  - ANKLE FRACTURE [None]
  - PANCREATITIS [None]
